FAERS Safety Report 25413544 (Version 1)
Quarter: 2025Q2

REPORT INFORMATION
  Report Type: Spontaneous
  Country: FR (occurrence: FR)
  Receive Date: 20250609
  Receipt Date: 20250609
  Transmission Date: 20250716
  Serious: Yes (Hospitalization)
  Sender: SANDOZ
  Company Number: None

PATIENT
  Age: 94 Year
  Sex: Female

DRUGS (2)
  1. CEFTAZIDIME [Suspect]
     Active Substance: CEFTAZIDIME
     Indication: Pseudomonal sepsis
     Dosage: 2 G 3 TIMES/DAY
     Route: 042
     Dates: start: 20250507, end: 20250509
  2. CIPROFLOXACIN HYDROCHLORIDE [Suspect]
     Active Substance: CIPROFLOXACIN HYDROCHLORIDE
     Indication: Pseudomonal sepsis
     Dosage: 750 MG PER DAY
     Route: 048
     Dates: start: 20250509, end: 20250512

REACTIONS (2)
  - Cholestasis [Recovering/Resolving]
  - Acute kidney injury [Recovering/Resolving]

NARRATIVE: CASE EVENT DATE: 20250511
